FAERS Safety Report 18920144 (Version 1)
Quarter: 2021Q1

REPORT INFORMATION
  Report Type: Report from Study
  Country: None (occurrence: DE)
  Receive Date: 20210222
  Receipt Date: 20210222
  Transmission Date: 20210420
  Serious: Yes (Death, Other)
  Sender: FDA-Public Use
  Company Number: DE-ABBVIE-21K-062-3783593-00

PATIENT
  Age: 69 Year
  Sex: Male

DRUGS (1)
  1. HUMIRA [Suspect]
     Active Substance: ADALIMUMAB
     Indication: PSORIATIC ARTHROPATHY
     Route: 058
     Dates: start: 20100906, end: 202006

REACTIONS (7)
  - Myocardial infarction [Fatal]
  - Aortic valve stenosis [Not Recovered/Not Resolved]
  - Stent placement [Recovered/Resolved]
  - Myocardial infarction [Recovered/Resolved]
  - Cataract [Recovered/Resolved]
  - Intraocular lens implant [Recovered/Resolved]
  - Glaucoma [Recovering/Resolving]

NARRATIVE: CASE EVENT DATE: 201411
